FAERS Safety Report 7713767-1 (Version None)
Quarter: 2011Q3

REPORT INFORMATION
  Report Type: 
  Country: None (occurrence: None)
  Receive Date: 20110826
  Receipt Date: 20110822
  Transmission Date: 20111222
  Serious: Yes (Death, Hospitalization)
  Sender: FDA-Public Use
  Company Number: US-PFIZER INC-2011194968

PATIENT
  Sex: Male

DRUGS (1)
  1. SUTENT [Suspect]
     Indication: RENAL CANCER STAGE IV

REACTIONS (8)
  - STOMATITIS [None]
  - DEHYDRATION [None]
  - BURNING SENSATION [None]
  - AGEUSIA [None]
  - DISEASE PROGRESSION [None]
  - RENAL CANCER STAGE IV [None]
  - HAEMORRHAGE [None]
  - DECREASED APPETITE [None]
